FAERS Safety Report 18180362 (Version 1)
Quarter: 2020Q3

REPORT INFORMATION
  Report Type: Spontaneous
  Country: US (occurrence: US)
  Receive Date: 20200821
  Receipt Date: 20200821
  Transmission Date: 20201103
  Serious: Yes (Death)
  Sender: FDA-Public Use
  Company Number: None

PATIENT
  Age: 56 Year
  Sex: Female
  Weight: 53.5 kg

DRUGS (1)
  1. AXICABTAGENE CILOLEUCEL [Suspect]
     Active Substance: AXICABTAGENE CILOLEUCEL
     Indication: DIFFUSE LARGE B-CELL LYMPHOMA REFRACTORY
     Dosage: ?          OTHER FREQUENCY:ONCE;?
     Route: 040
     Dates: start: 20200513, end: 20200513

REACTIONS (10)
  - Tremor [None]
  - Hypotension [None]
  - Infection [None]
  - Metabolic acidosis [None]
  - Pyrexia [None]
  - Multiple organ dysfunction syndrome [None]
  - Cardio-respiratory arrest [None]
  - Confusional state [None]
  - C-reactive protein increased [None]
  - Encephalopathy [None]

NARRATIVE: CASE EVENT DATE: 20200601
